FAERS Safety Report 6701841-8 (Version None)
Quarter: 2010Q2

REPORT INFORMATION
  Report Type: 
  Country: None (occurrence: None)
  Receive Date: 20100429
  Receipt Date: 20100421
  Transmission Date: 20101027
  Serious: Yes (Other)
  Sender: FDA-Public Use
  Company Number: US-BAYER-201020153NA

PATIENT
  Age: 56 Year
  Sex: Female

DRUGS (1)
  1. AVELOX [Suspect]
     Indication: SINUSITIS
     Dates: start: 20100320, end: 20100329

REACTIONS (7)
  - CHILLS [None]
  - DIARRHOEA [None]
  - OEDEMA PERIPHERAL [None]
  - PETECHIAE [None]
  - PHARYNGEAL ULCERATION [None]
  - RASH [None]
  - VISION BLURRED [None]
